FAERS Safety Report 6698987-X (Version None)
Quarter: 2010Q2

REPORT INFORMATION
  Report Type: 
  Country: None (occurrence: None)
  Receive Date: 20100426
  Receipt Date: 20100426
  Transmission Date: 20101027
  Serious: Yes (Hospitalization)
  Sender: FDA-Public Use
  Company Number: None

PATIENT
  Sex: Female
  Weight: 117.7 kg

DRUGS (4)
  1. FLUOROURACIL [Suspect]
     Dosage: 6244 MG
     Dates: end: 20100331
  2. BEVACIZUMAB (RHUMAB VEGF) [Suspect]
     Dosage: 590 MG
     Dates: end: 20100331
  3. CAMPTOSAR [Suspect]
     Dosage: 401 MG
     Dates: end: 20100331
  4. LEUCOVORIN CALCIUM [Suspect]
     Dosage: 892 MG
     Dates: end: 20100331

REACTIONS (4)
  - FEMORAL ARTERY OCCLUSION [None]
  - HYPOAESTHESIA [None]
  - INTERMITTENT CLAUDICATION [None]
  - PERIPHERAL COLDNESS [None]
